FAERS Safety Report 7301239-8 (Version None)
Quarter: 2011Q1

REPORT INFORMATION
  Report Type: 
  Country: None (occurrence: None)
  Receive Date: 20110218
  Receipt Date: 20110216
  Transmission Date: 20110831
  Serious: Yes (Hospitalization, Other)
  Sender: FDA-Public Use
  Company Number: US-PFIZER INC-2011034912

PATIENT
  Sex: Male
  Weight: 132.88 kg

DRUGS (6)
  1. XANAX [Suspect]
     Indication: PANIC ATTACK
     Dosage: UNK
     Route: 048
     Dates: end: 19850101
  2. XANAX [Suspect]
     Indication: NERVOUSNESS
  3. ATENOLOL [Concomitant]
     Indication: HYPERTENSION
     Dosage: UNK
     Route: 048
  4. XANAX [Suspect]
     Indication: POST-TRAUMATIC STRESS DISORDER
  5. XANAX [Suspect]
     Indication: BIPOLAR DISORDER
  6. XANAX [Suspect]
     Indication: ANXIETY

REACTIONS (3)
  - SURGERY [None]
  - HAEMORRHAGE [None]
  - WEIGHT INCREASED [None]
